FAERS Safety Report 17554617 (Version 1)
Quarter: 2020Q1

REPORT INFORMATION
  Report Type: Spontaneous
  Country: NL (occurrence: NL)
  Receive Date: 20200318
  Receipt Date: 20200318
  Transmission Date: 20200409
  Serious: Yes (Life-Threatening, Other)
  Sender: FDA-Public Use
  Company Number: NVSC2020NL075445

PATIENT
  Sex: Female

DRUGS (4)
  1. MIRENA [Concomitant]
     Active Substance: LEVONORGESTREL
     Indication: PRODUCT USED FOR UNKNOWN INDICATION
     Dosage: UNK
     Route: 065
  2. OLANZAPINE. [Suspect]
     Active Substance: OLANZAPINE
     Indication: SLEEP DISORDER
     Dosage: ONE TABLET, 4 TIMES DAILY (AS NECESSARY)
     Route: 065
     Dates: start: 201508
  3. TRACYDAL [Suspect]
     Active Substance: TRANYLCYPROMINE SULFATE
     Indication: DEPRESSION
     Dosage: 20 MG, EVERY 2 DAYS
     Route: 065
     Dates: start: 201508
  4. OLANZAPINE. [Suspect]
     Active Substance: OLANZAPINE
     Dosage: 1 TO 2 TIMES A WEEK, NO MORE THAN 2.5 MG EACH TIME.
     Route: 065
     Dates: start: 201508

REACTIONS (2)
  - Hypertensive crisis [Recovered/Resolved]
  - Contraindicated product administered [Not Recovered/Not Resolved]

NARRATIVE: CASE EVENT DATE: 201808
